FAERS Safety Report 4932200-6 (Version None)
Quarter: 2006Q1

REPORT INFORMATION
  Report Type: 
  Country: None (occurrence: None)
  Receive Date: 20060228
  Receipt Date: 20060217
  Transmission Date: 20060701
  Serious: Yes (Hospitalization)
  Sender: FDA-Public Use
  Company Number: 2006025374

PATIENT
  Age: 72 Year
  Sex: Female
  Weight: 42.1845 kg

DRUGS (3)
  1. NORVASC [Suspect]
     Indication: HYPERTENSION
     Dosage: 10 MG (10 MG,QD), ORAL
     Route: 048
     Dates: start: 20050922
  2. CLONIDINE [Concomitant]
  3. LISINOPRIL [Concomitant]

REACTIONS (8)
  - ASTHENIA [None]
  - DIFFICULTY IN WALKING [None]
  - DYSARTHRIA [None]
  - ERYTHEMA [None]
  - FEELING ABNORMAL [None]
  - FLUSHING [None]
  - HYPOAESTHESIA [None]
  - PARAESTHESIA [None]
